FAERS Safety Report 10700566 (Version 1)
Quarter: 2014Q4

REPORT INFORMATION
  Report Type: Spontaneous
  Country: US (occurrence: None)
  Receive Date: 20141224
  Receipt Date: 20141224
  Transmission Date: 20150529
  Serious: Yes (Death, Hospitalization)
  Sender: FDA-Public Use
  Company Number: PHEH2014US015301

PATIENT
  Age: 86 Year
  Sex: Female

DRUGS (2)
  1. ZYKADIA [Suspect]
     Active Substance: CERITINIB
     Indication: LUNG NEOPLASM MALIGNANT
     Route: 048
     Dates: start: 201407
  2. ZYKADIA [Suspect]
     Active Substance: CERITINIB
     Indication: LARYNGEAL CANCER
     Route: 048
     Dates: start: 201407

REACTIONS (4)
  - Lung neoplasm malignant [None]
  - Malignant neoplasm progression [None]
  - Dysphagia [None]
  - Laryngeal cancer [None]
